FAERS Safety Report 5268910-3 (Version None)
Quarter: 2007Q1

REPORT INFORMATION
  Report Type: 
  Country: None (occurrence: None)
  Receive Date: 20061213
  Receipt Date: 20031218
  Transmission Date: 20070707
  Serious: Yes (Other)
  Sender: FDA-Public Use
  Company Number: 2003UW16884

PATIENT
  Sex: Female

DRUGS (9)
  1. IRESSA [Suspect]
     Indication: LUNG NEOPLASM MALIGNANT
     Dosage: 250 MG QD PO
     Route: 048
     Dates: start: 20031201
  2. COUMADIN [Concomitant]
  3. ACTOS [Concomitant]
  4. FUROSEMIDE [Concomitant]
  5. ATIVAN [Concomitant]
  6. MS CONTIN [Concomitant]
  7. MORPHINE [Concomitant]
  8. REGLAN [Concomitant]
  9. INSULIN [Concomitant]

REACTIONS (5)
  - BLOOD GLUCOSE ABNORMAL [None]
  - FATIGUE [None]
  - HAEMORRHAGE [None]
  - INSOMNIA [None]
  - RASH [None]
